FAERS Safety Report 7481501-9 (Version None)
Quarter: 2011Q2

REPORT INFORMATION
  Report Type: 
  Country: None (occurrence: None)
  Receive Date: 20110516
  Receipt Date: 20110427
  Transmission Date: 20111010
  Serious: No
  Sender: FDA-Public Use
  Company Number: US-B.I. PHARMACEUTICALS,INC./RIDGEFIELD-2011-BP-05165BP

PATIENT
  Sex: Male

DRUGS (6)
  1. ZOCOR [Concomitant]
  2. ACEBUTOLOL [Concomitant]
  3. ALTALIZ [Concomitant]
  4. AVODART [Concomitant]
  5. PRADAXA [Suspect]
     Indication: ATRIAL FIBRILLATION
     Dosage: 300 MG
     Route: 048
     Dates: end: 20101212
  6. NEXIUM [Concomitant]

REACTIONS (2)
  - URINARY TRACT INFECTION [None]
  - HAEMATURIA [None]
